FAERS Safety Report 7290288-4 (Version None)
Quarter: 2011Q1

REPORT INFORMATION
  Report Type: 
  Country: None (occurrence: None)
  Receive Date: 20110208
  Receipt Date: 20110208
  Transmission Date: 20110831
  Serious: Yes (Other)
  Sender: FDA-Public Use
  Company Number: None

PATIENT
  Sex: Female
  Weight: 83.4619 kg

DRUGS (2)
  1. PROTONIX [Suspect]
     Indication: BARRETT'S OESOPHAGUS
     Dosage: 40 MG DAILY P.O.
     Route: 048
     Dates: start: 20010222, end: 20011214
  2. PRILOSEC [Suspect]
     Indication: BARRETT'S OESOPHAGUS
     Dosage: 20 MG DAILY P.O.
     Route: 048
     Dates: start: 19971126, end: 20010222

REACTIONS (1)
  - DRUG INEFFECTIVE [None]
